FAERS Safety Report 20310657 (Version 1)
Quarter: 2022Q1

REPORT INFORMATION
  Report Type: Spontaneous
  Country: US (occurrence: None)
  Receive Date: 20220107
  Receipt Date: 20220107
  Transmission Date: 20220423
  Serious: Yes (Hospitalization)
  Sender: FDA-Public Use
  Company Number: None

PATIENT
  Age: 57 Year
  Sex: Female

DRUGS (22)
  1. BACTRIM DS [Suspect]
     Active Substance: SULFAMETHOXAZOLE\TRIMETHOPRIM
  2. ALBUTEROL SULFATE [Concomitant]
     Active Substance: ALBUTEROL SULFATE
  3. ANORO ELLIPTA [Concomitant]
     Active Substance: UMECLIDINIUM BROMIDE\VILANTEROL TRIFENATATE
  4. BECONASE AQ [Concomitant]
     Active Substance: BECLOMETHASONE DIPROPIONATE MONOHYDRATE
  5. BENZONATATE [Concomitant]
     Active Substance: BENZONATATE
  6. BIKTARVY [Concomitant]
     Active Substance: BICTEGRAVIR SODIUM\EMTRICITABINE\TENOFOVIR ALAFENAMIDE FUMARATE
  7. MINERALS\VITAMINS [Concomitant]
     Active Substance: MINERALS\VITAMINS
  8. CYCLOBENZAPRINE [Concomitant]
     Active Substance: CYCLOBENZAPRINE
  9. ESTRADIOL [Concomitant]
     Active Substance: ESTRADIOL
  10. FOLIC ACID [Concomitant]
     Active Substance: FOLIC ACID
  11. INCRUSE ELLIPTA [Concomitant]
     Active Substance: UMECLIDINIUM BROMIDE
  12. LIDOCAINE [Concomitant]
     Active Substance: LIDOCAINE
  13. LORATADINE [Concomitant]
     Active Substance: LORATADINE
  14. MELOXICAM [Concomitant]
     Active Substance: MELOXICAM
  15. NICOTINE TRANSDERMAL SYSTEM [Concomitant]
     Active Substance: NICOTINE
  16. OMEPRAZOLE [Concomitant]
     Active Substance: OMEPRAZOLE
  17. OXYCODONE [Concomitant]
     Active Substance: OXYCODONE
  18. PREGABALIN [Concomitant]
     Active Substance: PREGABALIN
  19. PREZCOBIX [Concomitant]
     Active Substance: COBICISTAT\DARUNAVIR ETHANOLATE
  20. SPIRONOLACTONE [Concomitant]
     Active Substance: SPIRONOLACTONE
  21. THIAMINE [Concomitant]
     Active Substance: THIAMINE
  22. UREA [Concomitant]
     Active Substance: UREA

REACTIONS (4)
  - Asthenia [None]
  - Urinary retention [None]
  - Hyperkalaemia [None]
  - Tremor [None]
